FAERS Safety Report 20549496 (Version 1)
Quarter: 2022Q1

REPORT INFORMATION
  Report Type: Spontaneous
  Country: US (occurrence: US)
  Receive Date: 20220303
  Receipt Date: 20220303
  Transmission Date: 20220423
  Serious: No
  Sender: FDA-Public Use
  Company Number: US-ALLERGAN-2123781US

PATIENT

DRUGS (3)
  1. RESTASIS [Suspect]
     Active Substance: CYCLOSPORINE
     Indication: Dry eye
  2. UNSPECIFIED INGREDIENT [Concomitant]
     Active Substance: UNSPECIFIED INGREDIENT
  3. UNSPECIFIED INGREDIENT [Concomitant]
     Active Substance: UNSPECIFIED INGREDIENT
     Indication: Dry eye

REACTIONS (6)
  - Periorbital swelling [Recovered/Resolved]
  - Dry eye [Unknown]
  - Product use issue [Unknown]
  - Eye irritation [Not Recovered/Not Resolved]
  - Eye swelling [Recovered/Resolved]
  - Therapeutic response shortened [Unknown]
